FAERS Safety Report 8317671-X (Version None)
Quarter: 2012Q2

REPORT INFORMATION
  Report Type: 
  Country: None (occurrence: None)
  Receive Date: 20120427
  Receipt Date: 20110303
  Transmission Date: 20120825
  Serious: No
  Sender: FDA-Public Use
  Company Number: US-GLAXOSMITHKLINE-A0916457A

PATIENT
  Age: 47 Year
  Sex: Male

DRUGS (2)
  1. AMERGE [Suspect]
     Indication: MIGRAINE
     Dosage: 2.5MG TWICE PER DAY
     Route: 048
     Dates: start: 20110214, end: 20110214
  2. NO CONCURRENT MEDICATION [Concomitant]

REACTIONS (1)
  - RASH MACULAR [None]
